FAERS Safety Report 23665517 (Version 1)
Quarter: 2024Q1

REPORT INFORMATION
  Report Type: Spontaneous
  Country: US (occurrence: US)
  Receive Date: 20240323
  Receipt Date: 20240323
  Transmission Date: 20240410
  Serious: No
  Sender: FDA-Public Use
  Company Number: US-ELI_LILLY_AND_COMPANY-US202403013203

PATIENT
  Age: 41 Year
  Sex: Female

DRUGS (16)
  1. ZEPBOUND [Suspect]
     Active Substance: TIRZEPATIDE
     Indication: Weight control
     Dosage: 2.5 MG, UNKNOWN
     Route: 058
     Dates: start: 202309
  2. ZEPBOUND [Suspect]
     Active Substance: TIRZEPATIDE
     Indication: Weight control
     Dosage: 2.5 MG, UNKNOWN
     Route: 058
     Dates: start: 202309
  3. ZEPBOUND [Suspect]
     Active Substance: TIRZEPATIDE
     Indication: Weight control
     Dosage: 2.5 MG, UNKNOWN
     Route: 058
     Dates: start: 202309
  4. ZEPBOUND [Suspect]
     Active Substance: TIRZEPATIDE
     Indication: Weight control
     Dosage: 2.5 MG, UNKNOWN
     Route: 058
     Dates: start: 202309
  5. ZEPBOUND [Suspect]
     Active Substance: TIRZEPATIDE
     Dosage: 5 MG, UNKNOWN
     Route: 058
  6. ZEPBOUND [Suspect]
     Active Substance: TIRZEPATIDE
     Dosage: 5 MG, UNKNOWN
     Route: 058
  7. ZEPBOUND [Suspect]
     Active Substance: TIRZEPATIDE
     Dosage: 5 MG, UNKNOWN
     Route: 058
  8. ZEPBOUND [Suspect]
     Active Substance: TIRZEPATIDE
     Dosage: 5 MG, UNKNOWN
     Route: 058
  9. ZEPBOUND [Suspect]
     Active Substance: TIRZEPATIDE
     Dosage: 7.5 MG, UNKNOWN
     Route: 058
  10. ZEPBOUND [Suspect]
     Active Substance: TIRZEPATIDE
     Dosage: 7.5 MG, UNKNOWN
     Route: 058
  11. ZEPBOUND [Suspect]
     Active Substance: TIRZEPATIDE
     Dosage: 7.5 MG, UNKNOWN
     Route: 058
  12. ZEPBOUND [Suspect]
     Active Substance: TIRZEPATIDE
     Dosage: 7.5 MG, UNKNOWN
     Route: 058
  13. ZEPBOUND [Suspect]
     Active Substance: TIRZEPATIDE
     Dosage: 10 MG, UNKNOWN
     Route: 058
  14. ZEPBOUND [Suspect]
     Active Substance: TIRZEPATIDE
     Dosage: 10 MG, UNKNOWN
     Route: 058
  15. ZEPBOUND [Suspect]
     Active Substance: TIRZEPATIDE
     Dosage: 10 MG, UNKNOWN
     Route: 058
  16. ZEPBOUND [Suspect]
     Active Substance: TIRZEPATIDE
     Dosage: 10 MG, UNKNOWN
     Route: 058

REACTIONS (2)
  - Incorrect dose administered [Unknown]
  - Injection site injury [Recovered/Resolved]

NARRATIVE: CASE EVENT DATE: 20240321
